FAERS Safety Report 13893850 (Version 1)
Quarter: 2017Q3

REPORT INFORMATION
  Report Type: Spontaneous
  Country: US (occurrence: US)
  Receive Date: 20170822
  Receipt Date: 20170822
  Transmission Date: 20171127
  Serious: No
  Sender: FDA-Public Use
  Company Number: US-GALDERMA-US17004159

PATIENT
  Age: 64 Year
  Sex: Female
  Weight: 57.73 kg

DRUGS (11)
  1. MULTI VITAMIN [Concomitant]
     Active Substance: VITAMINS
  2. RALOXIFENE HCL [Concomitant]
     Active Substance: RALOXIFENE
  3. METROGEL [Suspect]
     Active Substance: METRONIDAZOLE
     Indication: ROSACEA
     Route: 061
     Dates: start: 201607
  4. CALCIUM 600 +D [Concomitant]
  5. TOPIRAMATE. [Concomitant]
     Active Substance: TOPIRAMATE
  6. SULFACETAMIDE. [Concomitant]
     Active Substance: SULFACETAMIDE
     Dosage: 10%
     Route: 061
  7. RISEDRONATE SODUIM [Concomitant]
  8. ONFI [Concomitant]
     Active Substance: CLOBAZAM
  9. LAMOTRIGINE. [Concomitant]
     Active Substance: LAMOTRIGINE
  10. LEVETIRACETAM. [Concomitant]
     Active Substance: LEVETIRACETAM
  11. VESICARE [Concomitant]
     Active Substance: SOLIFENACIN SUCCINATE

REACTIONS (3)
  - Accidental exposure to product [Unknown]
  - Ocular hyperaemia [Unknown]
  - Eye irritation [Unknown]

NARRATIVE: CASE EVENT DATE: 20170531
